FAERS Safety Report 6916686-3 (Version None)
Quarter: 2010Q3

REPORT INFORMATION
  Report Type: 
  Country: None (occurrence: None)
  Receive Date: 20100809
  Receipt Date: 20100809
  Transmission Date: 20110219
  Serious: Yes (Hospitalization)
  Sender: FDA-Public Use
  Company Number: None

PATIENT
  Sex: Male
  Weight: 13.7 kg

DRUGS (5)
  1. CYTARABINE [Suspect]
     Dosage: 50 MG
  2. DEXAMETHASONE [Suspect]
     Dosage: 1.6 MG
  3. METHOTREXATE [Suspect]
     Dosage: 10 MG
  4. PEG-L-ASPARAGINASE(PEGASPARGASE, ONCOSPAR) [Suspect]
     Dosage: 1425 UNIT
  5. VINCRISTINE SULFATE [Suspect]
     Dosage: .8 MG

REACTIONS (1)
  - PYREXIA [None]
